FAERS Safety Report 8965403 (Version 3)
Quarter: 2012Q4

REPORT INFORMATION
  Report Type: 
  Country: JP (occurrence: JP)
  Receive Date: 20121214
  Receipt Date: 20121228
  Transmission Date: 20130627
  Serious: Yes (Death, Other)
  Sender: FDA-Public Use
  Company Number: PHHY2012JP114629

PATIENT
  Age: 74 Year
  Sex: Male

DRUGS (5)
  1. CARBOPLATIN [Suspect]
     Indication: SMALL CELL LUNG CANCER STAGE UNSPECIFIED
     Dosage: 300 mg/day
     Route: 041
     Dates: start: 20110420, end: 20110420
  2. VEPESID [Suspect]
     Indication: SMALL CELL LUNG CANCER STAGE UNSPECIFIED
     Dosage: 120 mg/day
     Route: 041
     Dates: start: 20110420, end: 20110422
  3. METHYLPREDNISOLONE [Concomitant]
     Indication: INTERSTITIAL LUNG DISEASE
  4. PREDNISOLONE [Concomitant]
     Indication: INTERSTITIAL LUNG DISEASE
     Route: 048
  5. AMPHOTERICIN B [Concomitant]
     Indication: INTERSTITIAL LUNG DISEASE
     Route: 042

REACTIONS (4)
  - Malignant neoplasm progression [Fatal]
  - Acute respiratory failure [Unknown]
  - Refractory cytopenia with unilineage dysplasia [Unknown]
  - Febrile neutropenia [Recovering/Resolving]
